FAERS Safety Report 19704694 (Version 1)
Quarter: 2021Q3

REPORT INFORMATION
  Report Type: Spontaneous
  Country: US (occurrence: US)
  Receive Date: 20210813
  Receipt Date: 20210813
  Transmission Date: 20211014
  Serious: Yes (Disabling, Other)
  Sender: FDA-Public Use
  Company Number: None

PATIENT
  Age: 90 Year
  Sex: Female
  Weight: 72.57 kg

DRUGS (5)
  1. MULTIPLE VITAMIN [Concomitant]
     Active Substance: VITAMINS
  2. PROLIA [Suspect]
     Active Substance: DENOSUMAB
     Indication: OSTEOPOROSIS
     Dosage: ??          QUANTITY:2 DF DOSAGE FORM;OTHER FREQUENCY:EVERY 6 MOS.;?
  3. VITAMIN C [Concomitant]
     Active Substance: ASCORBIC ACID
  4. VITAMIN B [Concomitant]
     Active Substance: VITAMIN B
  5. VITAMIN D [Concomitant]
     Active Substance: VITAMIN D NOS

REACTIONS (10)
  - Pelvic fracture [None]
  - Tooth fracture [None]
  - Spinal fracture [None]
  - Dizziness [None]
  - Balance disorder [None]
  - Urinary tract infection [None]
  - Rib fracture [None]
  - Rash [None]
  - Ear haemorrhage [None]
  - Ear disorder [None]
